FAERS Safety Report 11767081 (Version 1)
Quarter: 2015Q4

REPORT INFORMATION
  Report Type: Spontaneous
  Country: US (occurrence: None)
  Receive Date: 20151120
  Receipt Date: 20151120
  Transmission Date: 20160304
  Serious: No
  Sender: FDA-Public Use
  Company Number: None

PATIENT
  Age: 57 Year
  Sex: Female

DRUGS (1)
  1. BOTOX [Suspect]
     Active Substance: ONABOTULINUMTOXINA
     Dosage: 200 U EVERY 90 DAYS IM
     Route: 030
     Dates: start: 20150806

REACTIONS (1)
  - Neck pain [None]

NARRATIVE: CASE EVENT DATE: 20151118
